FAERS Safety Report 4714675-0 (Version None)
Quarter: 2005Q3

REPORT INFORMATION
  Report Type: 
  Country: None (occurrence: None)
  Receive Date: 20050712
  Receipt Date: 20050629
  Transmission Date: 20060218
  Serious: Yes (Death)
  Sender: FDA-Public Use
  Company Number: 2005095028

PATIENT
  Age: 39 Year
  Sex: Male

DRUGS (3)
  1. DIFLUCAN [Suspect]
     Indication: ILL-DEFINED DISORDER
     Dosage: 200 MG, ORAL
     Route: 048
  2. MICAFUNGIN [Concomitant]
  3. FUNGIZONE [Concomitant]

REACTIONS (2)
  - CANDIDA SEPSIS [None]
  - THERAPY NON-RESPONDER [None]
